FAERS Safety Report 4353632-3 (Version None)
Quarter: 2004Q2

REPORT INFORMATION
  Report Type: 
  Country: None (occurrence: None)
  Receive Date: 20040430
  Receipt Date: 20040406
  Transmission Date: 20050107
  Serious: Yes (Hospitalization)
  Sender: FDA-Public Use
  Company Number: SUS1-2004-00212

PATIENT
  Age: 15 Month
  Sex: Female
  Weight: 11.1 kg

DRUGS (1)
  1. ADDERALL [Suspect]
     Dosage: 5 TO 10 30MG (150-300MG), ORAL
     Route: 048
     Dates: start: 20040404, end: 20040404

REACTIONS (7)
  - ACCIDENTAL EXPOSURE [None]
  - AGITATION [None]
  - ANOREXIA [None]
  - BLOOD CREATINE PHOSPHOKINASE INCREASED [None]
  - DISCOMFORT [None]
  - FATIGUE [None]
  - HEART RATE INCREASED [None]
